FAERS Safety Report 5468373-9 (Version None)
Quarter: 2007Q3

REPORT INFORMATION
  Report Type: 
  Country: None (occurrence: None)
  Receive Date: 20070926
  Receipt Date: 20070919
  Transmission Date: 20080115
  Serious: Yes (Death)
  Sender: FDA-Public Use
  Company Number: B0488535A

PATIENT
  Age: 81 Year
  Sex: Female
  Weight: 68 kg

DRUGS (16)
  1. AMOXICILLIN [Suspect]
     Dosage: 500MG THREE TIMES PER DAY
     Route: 048
     Dates: start: 20070213
  2. AMIODARONE HCL [Concomitant]
  3. AMLODIPINE [Concomitant]
  4. ASPIRIN [Concomitant]
  5. BENDROFLUMETHIAZIDE [Concomitant]
  6. BRINZOLAMIDE [Concomitant]
  7. DIGOXIN [Concomitant]
  8. DOXAZOSIN MESYLATE [Concomitant]
  9. FOLIC ACID [Concomitant]
  10. HYDROXOCOBALAMIN [Concomitant]
  11. HYPROMELLOSE [Concomitant]
     Indication: EYE PRURITUS
     Route: 061
     Dates: start: 20070213
  12. IRON SULPHATE [Concomitant]
  13. LATANOPROST [Concomitant]
  14. LISINOPRIL [Concomitant]
  15. PREDNISOLONE [Concomitant]
     Indication: ASTHMA
     Dosage: 30MG PER DAY
     Route: 048
     Dates: start: 20070213
  16. SALAMOL [Concomitant]
     Route: 055

REACTIONS (6)
  - ANAPHYLACTIC REACTION [None]
  - BRAIN DEATH [None]
  - CIRCULATORY COLLAPSE [None]
  - FEELING HOT [None]
  - MALAISE [None]
  - PRURITUS [None]
